FAERS Safety Report 9136943 (Version 1)
Quarter: 2013Q1

REPORT INFORMATION
  Report Type: Spontaneous
  Country: US (occurrence: US)
  Receive Date: 20130304
  Receipt Date: 20130304
  Transmission Date: 20140127
  Serious: No
  Sender: FDA-Public Use
  Company Number: US-ABBOTT-12P-163-0943384-00

PATIENT
  Sex: Male

DRUGS (13)
  1. ANDROGEL [Suspect]
     Indication: BLOOD TESTOSTERONE DECREASED
     Dosage: 4 PUMPS DAILY
     Route: 062
  2. ANDROGEL [Suspect]
     Dosage: 6 PUMPS DAILY
     Dates: start: 2011, end: 201112
  3. TESTIM [Suspect]
     Indication: BLOOD TESTOSTERONE DECREASED
     Route: 062
     Dates: start: 2009
  4. TESTIM [Suspect]
     Dosage: 1/2 TUBE DAILY
     Route: 062
  5. TESTIM [Suspect]
     Route: 062
     Dates: start: 201112
  6. TESTIM [Suspect]
     Dosage: 2 TUBES DAILY
     Route: 062
     Dates: start: 20120508
  7. TESTOSTERONE [Suspect]
     Indication: PRODUCT USED FOR UNKNOWN INDICATION
     Route: 050
  8. UNKNOWN HIGH BLOOD PRESSURE MEDICATION [Concomitant]
     Indication: HYPERTENSION
     Dosage: 10 MG DAILY
  9. UNKNOWN HIGH BLOOD PRESSURE MEDICATION [Concomitant]
     Indication: HYPERTENSION
     Dosage: 50 MG/12.5 MG DAILY
  10. ZINC [Concomitant]
     Indication: PRODUCT USED FOR UNKNOWN INDICATION
  11. PROBIOTIC [Concomitant]
     Indication: PRODUCT USED FOR UNKNOWN INDICATION
  12. MULTIVITAMIN [Concomitant]
     Indication: PRODUCT USED FOR UNKNOWN INDICATION
  13. B13 [Concomitant]
     Indication: PRODUCT USED FOR UNKNOWN INDICATION

REACTIONS (5)
  - Feeling abnormal [Unknown]
  - Erectile dysfunction [Unknown]
  - Depressed mood [Unknown]
  - Blood testosterone decreased [Unknown]
  - Nerve injury [Recovered/Resolved]
